FAERS Safety Report 6453486-5 (Version None)
Quarter: 2009Q4

REPORT INFORMATION
  Report Type: 
  Country: None (occurrence: None)
  Receive Date: 20091124
  Receipt Date: 20091117
  Transmission Date: 20100525
  Serious: Yes (Hospitalization)
  Sender: FDA-Public Use
  Company Number: JP-JNJFOC-20091007786

PATIENT
  Sex: Female

DRUGS (6)
  1. TOPIRAMATE [Suspect]
     Route: 048
  2. TOPIRAMATE [Suspect]
     Route: 048
  3. TOPIRAMATE [Suspect]
     Route: 048
  4. TOPIRAMATE [Suspect]
     Indication: PARTIAL SEIZURES
     Route: 048
  5. VALPROATE SODIUM [Concomitant]
     Route: 048
  6. PHENOBARBITAL [Concomitant]
     Route: 048

REACTIONS (1)
  - STATUS EPILEPTICUS [None]
